FAERS Safety Report 8517347-X (Version None)
Quarter: 2012Q3

REPORT INFORMATION
  Report Type: 
  Country: None (occurrence: None)
  Receive Date: 20120718
  Receipt Date: 20120712
  Transmission Date: 20120928
  Serious: Yes (Death, Hospitalization, Congenital Anomaly, Other)
  Sender: FDA-Public Use
  Company Number: US-PFIZER INC-2010109653

PATIENT
  Sex: Female
  Weight: 2.4 kg

DRUGS (14)
  1. AZITHROMYCIN [Concomitant]
     Dosage: 250 MG, UNK
     Route: 064
     Dates: start: 20090817
  2. ZOLOFT [Suspect]
     Indication: DEPRESSION
     Dosage: 25 MG, 1X/DAY
     Route: 064
     Dates: start: 20050201, end: 20050227
  3. NEXIUM [Concomitant]
     Dosage: 40 MG, DAY
     Route: 064
  4. FOLIC ACID [Concomitant]
     Dosage: 1 MG, UNK
     Route: 064
     Dates: start: 20090807
  5. ERYTHROMYCIN [Concomitant]
     Dosage: APPLIED TO EACH EYELID EVERY NIGHT AT BED TIME
     Route: 064
     Dates: start: 20090622
  6. FLUCONAZOLE [Concomitant]
     Dosage: 150 MG, WEEKLY (150 MG TABLETS, ONE TABLET WEEKLY FOR TWO WEEKS)
     Route: 064
     Dates: start: 20090610, end: 20090601
  7. TOBREX [Concomitant]
     Indication: CONJUNCTIVITIS
     Dosage: ONE DROP EVERY 4-6HOURS AS NEEDED
     Route: 064
     Dates: start: 20090627
  8. ORTHO TRI-CYCLEN [Concomitant]
     Dosage: UNK
     Route: 064
  9. SERTRALINE [Concomitant]
     Dosage: 50 MG, 1X/DAY (50 MG TABLETS, ONE TABLET ONCE DAILY)
     Route: 064
     Dates: start: 20090527
  10. AUGMENTIN '500' [Concomitant]
     Indication: ACUTE SINUSITIS
     Dosage: TWO TABLETS PER DAY
     Route: 064
  11. ACETYLSALICYLIC ACID [Concomitant]
     Indication: TYPE 2 DIABETES MELLITUS
     Dosage: 81 MG, DAY
     Route: 064
  12. AMOXICILLIN [Concomitant]
     Dosage: 875-125 MG
     Route: 064
     Dates: start: 20090622
  13. ZOLOFT [Suspect]
     Indication: ANXIETY
     Dosage: 50 MG, 1X/DAY
     Route: 064
     Dates: start: 20050228
  14. MIDRIN [Concomitant]
     Dosage: UNK
     Route: 064

REACTIONS (16)
  - GROWTH RETARDATION [None]
  - HYPERGLYCAEMIA [None]
  - HEART RATE DECREASED [None]
  - HEART DISEASE CONGENITAL [None]
  - JAUNDICE [None]
  - HEPATIC VEIN THROMBOSIS [None]
  - CARDIAC ARREST [None]
  - PATENT DUCTUS ARTERIOSUS [None]
  - ASCITES [None]
  - ANAEMIA [None]
  - MATERNAL DRUGS AFFECTING FOETUS [None]
  - FOETAL EXPOSURE DURING PREGNANCY [None]
  - EXOMPHALOS [None]
  - SEPSIS [None]
  - VENTRICULAR TACHYCARDIA [None]
  - INTESTINAL DILATATION [None]
